FAERS Safety Report 25067566 (Version 1)
Quarter: 2025Q1

REPORT INFORMATION
  Report Type: Spontaneous
  Country: LT (occurrence: LT)
  Receive Date: 20250312
  Receipt Date: 20250312
  Transmission Date: 20250408
  Serious: Yes (Other)
  Sender: MACLEODS
  Company Number: LT-MACLEODS PHARMA-MAC2025052112

PATIENT

DRUGS (7)
  1. METHIMAZOLE [Suspect]
     Active Substance: METHIMAZOLE
     Indication: Hyperthyroidism
     Dosage: 5MG B.I.D. CUMULATIVE DOSE 7870MG OVER 57.29 WKS.
     Route: 065
     Dates: start: 20150121
  2. METHIMAZOLE [Suspect]
     Active Substance: METHIMAZOLE
     Dosage: 30MG/D 6 MONTHS
     Route: 065
  3. METHIMAZOLE [Suspect]
     Active Substance: METHIMAZOLE
     Dosage: 10 MG/D
     Route: 065
  4. METHIMAZOLE [Suspect]
     Active Substance: METHIMAZOLE
     Dosage: 5MG ONCE DAILY
     Route: 065
  5. METHIMAZOLE [Suspect]
     Active Substance: METHIMAZOLE
     Dosage: 2.5MG DAILY
     Route: 065
  6. METHYLPREDNISOLONE [Suspect]
     Active Substance: METHYLPREDNISOLONE
     Indication: Endocrine ophthalmopathy
     Dosage: 500MG PER WEEK FOR 6 WEEKS
     Route: 042
     Dates: start: 20150227
  7. METHYLPREDNISOLONE [Suspect]
     Active Substance: METHYLPREDNISOLONE
     Dosage: 250 MG PER WEEK FOR 6 WEEKS
     Route: 042
     Dates: start: 20150302

REACTIONS (3)
  - Liver injury [Recovered/Resolved]
  - Diabetes mellitus [Recovered/Resolved]
  - Drug interaction [Unknown]
